FAERS Safety Report 25578429 (Version 4)
Quarter: 2025Q3

REPORT INFORMATION
  Report Type: Report from Study
  Country: CO (occurrence: CO)
  Receive Date: 20250718
  Receipt Date: 20250802
  Transmission Date: 20251020
  Serious: No
  Sender: CHIESI
  Company Number: CO-CHIESI-2025CHF04922

PATIENT
  Age: 30 Year
  Sex: Female
  Weight: 65 kg

DRUGS (4)
  1. METRELEPTIN [Suspect]
     Active Substance: METRELEPTIN
     Indication: Familial partial lipodystrophy
     Dates: start: 20240607
  2. METRELEPTIN [Suspect]
     Active Substance: METRELEPTIN
     Dosage: 5 MILLIGRAM, QD
     Route: 058
     Dates: start: 20250704
  3. INSULIN GLARGINE [Concomitant]
     Active Substance: INSULIN GLARGINE
     Indication: Diabetes mellitus
     Dosage: 17 INTERNATIONAL UNIT, QD
     Route: 058
     Dates: start: 20210921
  4. METFORMIN [Concomitant]
     Active Substance: METFORMIN HYDROCHLORIDE
     Indication: Diabetes mellitus
     Dosage: 1000 MILLIGRAM, Q12H
     Route: 048
     Dates: start: 20210921

REACTIONS (5)
  - Asthenia [Recovered/Resolved]
  - Diarrhoea [Recovered/Resolved]
  - Fatigue [Recovered/Resolved]
  - Nausea [Recovered/Resolved]
  - Vomiting [Recovered/Resolved]

NARRATIVE: CASE EVENT DATE: 20250613
